FAERS Safety Report 21538760 (Version 1)
Quarter: 2022Q4

REPORT INFORMATION
  Report Type: Spontaneous
  Country: CN (occurrence: CN)
  Receive Date: 20221102
  Receipt Date: 20221102
  Transmission Date: 20230113
  Serious: Yes (Hospitalization)
  Sender: FDA-Public Use
  Company Number: CN-SA-SAC20221029000772

PATIENT
  Age: 82 Year
  Sex: Male

DRUGS (4)
  1. ENOXAPARIN SODIUM [Suspect]
     Active Substance: ENOXAPARIN SODIUM
     Indication: Arteriosclerosis coronary artery
     Dosage: 4000 IU, QD
     Route: 058
     Dates: start: 20221008, end: 20221014
  2. WARFARIN SODIUM [Suspect]
     Active Substance: WARFARIN SODIUM
     Indication: Arteriosclerosis coronary artery
     Dosage: 2.5 MG, QD
     Route: 048
     Dates: start: 20221011, end: 20221014
  3. WARFARIN SODIUM [Suspect]
     Active Substance: WARFARIN SODIUM
     Dosage: 1.88 MG, QD
     Route: 048
     Dates: start: 20221014, end: 20221016
  4. HEPARIN SODIUM [Concomitant]
     Active Substance: HEPARIN SODIUM
     Dosage: UNK

REACTIONS (1)
  - International normalised ratio increased [Recovering/Resolving]

NARRATIVE: CASE EVENT DATE: 20221016
